FAERS Safety Report 15589625 (Version 1)
Quarter: 2018Q4

REPORT INFORMATION
  Report Type: Spontaneous
  Country: US (occurrence: US)
  Receive Date: 20181106
  Receipt Date: 20181106
  Transmission Date: 20190205
  Serious: No
  Sender: FDA-Public Use
  Company Number: US-AMGEN-USASP2018153578

PATIENT
  Sex: Female

DRUGS (1)
  1. PROLIA [Suspect]
     Active Substance: DENOSUMAB
     Indication: PRODUCT USED FOR UNKNOWN INDICATION
     Dosage: UNK
     Route: 065
     Dates: start: 20181024

REACTIONS (4)
  - Headache [Not Recovered/Not Resolved]
  - Blister [Recovered/Resolved]
  - Fatigue [Unknown]
  - Tongue blistering [Unknown]

NARRATIVE: CASE EVENT DATE: 201810
